FAERS Safety Report 5833960-2 (Version None)
Quarter: 2008Q3

REPORT INFORMATION
  Report Type: 
  Country: None (occurrence: None)
  Receive Date: 20080801
  Receipt Date: 20080801
  Transmission Date: 20090109
  Serious: Yes (Other)
  Sender: FDA-Public Use
  Company Number: None

PATIENT
  Age: 21 Year
  Sex: Female
  Weight: 51.2565 kg

DRUGS (1)
  1. MIRENA [Suspect]
     Indication: CONTRACEPTION
     Dates: start: 20070401, end: 20080731

REACTIONS (5)
  - DEPRESSION [None]
  - DYSPAREUNIA [None]
  - LIBIDO DECREASED [None]
  - NAUSEA [None]
  - VOMITING [None]
